FAERS Safety Report 18600106 (Version 1)
Quarter: 2020Q4

REPORT INFORMATION
  Report Type: Spontaneous
  Country: JP (occurrence: JP)
  Receive Date: 20201210
  Receipt Date: 20201210
  Transmission Date: 20210114
  Serious: Yes (Other)
  Sender: FDA-Public Use
  Company Number: JP-ASTRAZENECA-2020SF62929

PATIENT
  Age: 48 Year
  Sex: Female

DRUGS (9)
  1. EVEROLIMUS. [Suspect]
     Active Substance: EVEROLIMUS
     Dosage: 10.0MG UNKNOWN
     Route: 065
     Dates: start: 202002
  2. PALBOCICLIB [Suspect]
     Active Substance: PALBOCICLIB
     Indication: BREAST CANCER FEMALE
     Dosage: DOSE UNKNOWN
     Route: 048
     Dates: start: 201809
  3. FASLODEX [Suspect]
     Active Substance: FULVESTRANT
     Indication: BREAST CANCER FEMALE
     Dosage: DOSE UNKNOWN
     Route: 030
     Dates: start: 201809
  4. EVEROLIMUS. [Suspect]
     Active Substance: EVEROLIMUS
     Dosage: 5.0MG UNKNOWN
     Route: 065
     Dates: start: 20200728
  5. NOLVADEX [Suspect]
     Active Substance: TAMOXIFEN CITRATE
     Indication: BREAST CANCER FEMALE
     Dosage: DOSE UNKNOWN
     Route: 048
     Dates: start: 201709
  6. EVEROLIMUS. [Suspect]
     Active Substance: EVEROLIMUS
     Dosage: 10.0MG UNKNOWN
     Route: 065
     Dates: start: 20200825
  7. LOPERAMIDE [Concomitant]
     Active Substance: LOPERAMIDE
     Route: 065
     Dates: start: 201709
  8. BEVACIZUMAB. [Concomitant]
     Active Substance: BEVACIZUMAB
     Indication: BREAST CANCER FEMALE
     Dosage: DOSE UNKNOWN
     Route: 065
     Dates: start: 201703
  9. EXEMESTANE. [Concomitant]
     Active Substance: EXEMESTANE
     Route: 065
     Dates: start: 202002

REACTIONS (3)
  - Breast mass [Unknown]
  - Metastases to liver [Unknown]
  - Lung disorder [Recovering/Resolving]

NARRATIVE: CASE EVENT DATE: 201808
